FAERS Safety Report 12217815 (Version 1)
Quarter: 2016Q1

REPORT INFORMATION
  Report Type: Other
  Country: US (occurrence: US)
  Receive Date: 20160329
  Receipt Date: 20160329
  Transmission Date: 20160526
  Serious: Yes (Other)
  Sender: FDA-Public Use
  Company Number: US-DEP_13918_2016

PATIENT

DRUGS (4)
  1. ROPIVACAINE [Suspect]
     Active Substance: ROPIVACAINE
     Dosage: BOLUS
     Route: 064
  2. ROPIVACAINE [Suspect]
     Active Substance: ROPIVACAINE
     Indication: LABOUR PAIN
     Dosage: PATIENT-CONTROLLED, BASAL RATE 8 ML/HR + 6 ML BOLUS AVAILABLE EVERY 8 MINUTES
     Route: 064
  3. FENTANYL. [Suspect]
     Active Substance: FENTANYL
     Dosage: 2 MCG/ML BOLUS
     Route: 064
  4. FENTANYL. [Suspect]
     Active Substance: FENTANYL
     Indication: LABOUR PAIN
     Dosage: PATIENT-CONTROLLED, BASAL RATE 8 ML/HR + 6 ML BOLUS AVAILABLE EVERY 8 MINUTES
     Route: 064

REACTIONS (3)
  - Foetal exposure during delivery [Recovered/Resolved]
  - Foetal heart rate deceleration abnormality [Recovered/Resolved]
  - Maternal drugs affecting foetus [None]
